FAERS Safety Report 6683065-6 (Version None)
Quarter: 2010Q2

REPORT INFORMATION
  Report Type: 
  Country: None (occurrence: None)
  Receive Date: 20100415
  Receipt Date: 20100406
  Transmission Date: 20101027
  Serious: Yes (Hospitalization, Other)
  Sender: FDA-Public Use
  Company Number: PHHY2010DE10152

PATIENT
  Sex: Female

DRUGS (7)
  1. LEPONEX [Suspect]
     Indication: SCHIZOPHRENIA, PARANOID TYPE
     Dosage: 25 - 125 MG/DAY
     Route: 048
     Dates: end: 20071101
  2. LEPONEX [Suspect]
     Dosage: 300 MG/DAY
     Dates: start: 20080601
  3. CLOZAPINE [Suspect]
     Indication: SCHIZOPHRENIA, PARANOID TYPE
     Dosage: 150 - 275 MG/DAY
     Route: 048
     Dates: start: 20071101, end: 20080601
  4. AMISULPRIDE [Suspect]
     Dosage: 400 MG UNK
     Route: 048
     Dates: end: 20071215
  5. AMISULPRIDE [Suspect]
     Dosage: 800 MG/DAY
     Route: 048
     Dates: start: 20071216, end: 20080715
  6. AMISULPRIDE [Suspect]
     Dosage: 600MG/DAY
     Dates: start: 20080716, end: 20090701
  7. AMISULPRIDE [Suspect]
     Dosage: 500MG/DAY
     Route: 048
     Dates: start: 20090702, end: 20090731

REACTIONS (5)
  - ELECTROENCEPHALOGRAM ABNORMAL [None]
  - FALL [None]
  - IMPAIRED WORK ABILITY [None]
  - MYOCLONUS [None]
  - SPEECH DISORDER [None]
